FAERS Safety Report 6595283-6 (Version None)
Quarter: 2010Q1

REPORT INFORMATION
  Report Type: 
  Country: None (occurrence: None)
  Receive Date: 20100221
  Receipt Date: 20100203
  Transmission Date: 20100710
  Serious: Yes (Other)
  Sender: FDA-Public Use
  Company Number: 496795

PATIENT
  Age: 57 Year
  Sex: Male

DRUGS (3)
  1. LIDOCAINE HCL W/ EPINEPHRINE [Suspect]
     Indication: LOCAL ANAESTHESIA
     Dosage: 1.5 CUBIC CM, INTRANASAL
     Route: 045
  2. MIDODRINE HYDROCHLORIDE [Suspect]
     Indication: ORTHOSTATIC HYPOTENSION
     Dosage: 10 MG, 3 DAY, ORAL
     Route: 048
  3. PREDNISONE [Suspect]
     Indication: GOUT
     Dosage: 20 MG, ORAL
     Route: 048

REACTIONS (4)
  - DRUG INTERACTION [None]
  - HEART RATE INCREASED [None]
  - HYPERTENSION [None]
  - PITUITARY TUMOUR BENIGN [None]
